FAERS Safety Report 4262931-5 (Version None)
Quarter: 2004Q1

REPORT INFORMATION
  Report Type: 
  Country: None (occurrence: None)
  Receive Date: 20040102
  Receipt Date: 20040102
  Transmission Date: 20041129
  Serious: Yes (Hospitalization)
  Sender: FDA-Public Use
  Company Number: None

PATIENT
  Age: 74 Year
  Sex: Male
  Weight: 75.2971 kg

DRUGS (11)
  1. GATIFLOXACIN 400 MG [Suspect]
     Indication: URINARY TRACT INFECTION
     Dosage: 400 MG QD ORAL
     Route: 048
     Dates: start: 20031102, end: 20031103
  2. PHENOBARBITAL TAB [Concomitant]
  3. VANCOMYCIN [Concomitant]
  4. CLOTRIMAZOLE [Concomitant]
  5. FINASTERIDE [Concomitant]
  6. TERAZOSIN HCL [Concomitant]
  7. FERROUS SULFATE TAB [Concomitant]
  8. PSYLLIUM HYD MUCIL [Concomitant]
  9. PIOGLITAZONE HCL [Concomitant]
  10. GLYBURIDE [Concomitant]
  11. GEMFIBROZIL [Concomitant]

REACTIONS (2)
  - HYPOGLYCAEMIA [None]
  - LOSS OF CONSCIOUSNESS [None]
